FAERS Safety Report 4981414-8 (Version None)
Quarter: 2006Q2

REPORT INFORMATION
  Report Type: 
  Country: None (occurrence: None)
  Receive Date: 20060424
  Receipt Date: 20060418
  Transmission Date: 20061013
  Serious: Yes (Hospitalization)
  Sender: FDA-Public Use
  Company Number: IT-MERCK-0604ITA00026

PATIENT
  Age: 33 Year
  Sex: Female

DRUGS (3)
  1. FOSAMAX [Suspect]
     Indication: OSTEOPOROSIS
     Route: 048
     Dates: start: 20040101, end: 20050101
  2. DEFEROXAMINE [Concomitant]
     Indication: THALASSAEMIA
     Route: 065
  3. ESTROGENS (UNSPECIFIED) AND PROGESTERONE [Concomitant]
     Indication: SECONDARY HYPOGONADISM
     Route: 065

REACTIONS (1)
  - HAEMOLYSIS [None]
